FAERS Safety Report 13382951 (Version 1)
Quarter: 2017Q1

REPORT INFORMATION
  Report Type: Spontaneous
  Country: BE (occurrence: BE)
  Receive Date: 20170329
  Receipt Date: 20170329
  Transmission Date: 20170429
  Serious: Yes (Other)
  Sender: FDA-Public Use
  Company Number: BE-JNJFOC-20170328862

PATIENT
  Age: 84 Year
  Sex: Female
  Weight: 74.5 kg

DRUGS (8)
  1. CANDESARTAN [Suspect]
     Active Substance: CANDESARTAN
     Indication: HYPERTENSION
     Route: 048
  2. BUPHENOX [Concomitant]
     Dosage: DOSAGE: UNKNOWN
     Route: 065
  3. XARELTO [Suspect]
     Active Substance: RIVAROXABAN
     Indication: PULMONARY EMBOLISM
     Route: 048
  4. FEMARA [Concomitant]
     Active Substance: LETROZOLE
     Dosage: DOSAGE: UNKNOWN
     Route: 065
  5. SERTRALINE [Concomitant]
     Active Substance: SERTRALINE HYDROCHLORIDE
     Dosage: DOSAGE: 50, UNKNOWN
     Route: 065
  6. L THYROXINE [Concomitant]
     Active Substance: LEVOTHYROXINE SODIUM
     Dosage: DOSAGE: UNKNOWN
     Route: 065
  7. CHARCOAL, ACTIVATED W/SACCHAROMYCES CEREVISIA [Concomitant]
     Dosage: DOSAGE TEXT: UNKNOWN
     Route: 065
  8. AMLOR [Suspect]
     Active Substance: AMLODIPINE BESYLATE
     Indication: HYPERTENSION
     Route: 048

REACTIONS (5)
  - Malaise [Unknown]
  - Pain [Unknown]
  - Blood pressure abnormal [Unknown]
  - Asthenia [Unknown]
  - Hypotension [Unknown]
